FAERS Safety Report 5167308-6 (Version None)
Quarter: 2006Q4

REPORT INFORMATION
  Report Type: 
  Country: None (occurrence: None)
  Receive Date: 20061130
  Receipt Date: 20061114
  Transmission Date: 20070319
  Serious: Yes (Hospitalization)
  Sender: FDA-Public Use
  Company Number: IMP_2585_2006

PATIENT
  Age: 71 Year
  Sex: Female

DRUGS (2)
  1. CLARITIN-D [Suspect]
     Indication: MULTIPLE ALLERGIES
     Dosage: 1 TAB ONCE PO
     Route: 048
     Dates: start: 20061108, end: 20061101
  2. CLARITIN [Suspect]
     Indication: MULTIPLE ALLERGIES
     Dosage: DF
     Dates: start: 20061101, end: 20061101

REACTIONS (2)
  - DYSPNOEA [None]
  - PALPITATIONS [None]
